FAERS Safety Report 16313075 (Version 1)
Quarter: 2019Q2

REPORT INFORMATION
  Report Type: Spontaneous
  Country: US (occurrence: US)
  Receive Date: 20190515
  Receipt Date: 20190515
  Transmission Date: 20190711
  Serious: Yes (Other)
  Sender: FDA-Public Use
  Company Number: US-VALIDUS PHARMACEUTICALS LLC-US-2019VAL000232

PATIENT

DRUGS (1)
  1. BUMEX [Suspect]
     Active Substance: BUMETANIDE
     Indication: POLYURIA
     Dosage: UNK, TWICE PER WEEK
     Route: 065

REACTIONS (1)
  - Fluid retention [Unknown]
